FAERS Safety Report 12935326 (Version 1)
Quarter: 2016Q4

REPORT INFORMATION
  Report Type: Spontaneous
  Country: US (occurrence: US)
  Receive Date: 20161114
  Receipt Date: 20161114
  Transmission Date: 20170207
  Serious: No
  Sender: FDA-Public Use
  Company Number: US-JAZZ-2016-US-018098

PATIENT
  Age: 55 Year
  Sex: Female

DRUGS (14)
  1. KLONOPIN [Concomitant]
     Active Substance: CLONAZEPAM
  2. METOPROLOL SUCCINATE. [Concomitant]
     Active Substance: METOPROLOL SUCCINATE
  3. IBUPROFEN. [Concomitant]
     Active Substance: IBUPROFEN
  4. PRAVASTATIN SODIUM. [Concomitant]
     Active Substance: PRAVASTATIN SODIUM
  5. MAGNESIUM OXIDE. [Concomitant]
     Active Substance: MAGNESIUM OXIDE
  6. POTASSIUM CL [Concomitant]
     Active Substance: POTASSIUM CHLORIDE
  7. DOXEPIN [Concomitant]
     Active Substance: DOXEPIN
  8. SEROQUEL [Concomitant]
     Active Substance: QUETIAPINE FUMARATE
  9. LASIX [Concomitant]
     Active Substance: FUROSEMIDE
  10. XYREM [Suspect]
     Active Substance: SODIUM OXYBATE
     Indication: NARCOLEPSY
     Dosage: 2.25 G, BID
     Route: 048
     Dates: start: 201510, end: 201511
  11. EPIPEN [Concomitant]
     Active Substance: EPINEPHRINE
  12. TRAMADOL HCL [Concomitant]
     Active Substance: TRAMADOL HYDROCHLORIDE
  13. ACETAMINOPHEN. [Concomitant]
     Active Substance: ACETAMINOPHEN
  14. XYREM [Suspect]
     Active Substance: SODIUM OXYBATE
     Dosage: 4.5 G, BID
     Route: 048
     Dates: start: 201511, end: 2016

REACTIONS (3)
  - Intentional product use issue [Unknown]
  - Impaired driving ability [Unknown]
  - Anxiety [Not Recovered/Not Resolved]

NARRATIVE: CASE EVENT DATE: 20160909
